FAERS Safety Report 15267982 (Version 1)
Quarter: 2018Q3

REPORT INFORMATION
  Report Type: Spontaneous
  Country: US (occurrence: US)
  Receive Date: 20180725
  Receipt Date: 20180725
  Transmission Date: 20181010
  Serious: Yes (Disabling)
  Sender: FDA-Public Use
  Company Number: None

PATIENT
  Age: 67 Year
  Sex: Female
  Weight: 90 kg

DRUGS (11)
  1. ROSUVASTATIN 5MG [Concomitant]
     Active Substance: ROSUVASTATIN
  2. PROZAC [Concomitant]
     Active Substance: FLUOXETINE HYDROCHLORIDE
  3. CALCIUM [Concomitant]
     Active Substance: CALCIUM
  4. ESTER C 500IU [Concomitant]
  5. VALSARTAN TABLETS USP 320 MG; LOT NO. VR417048A [Suspect]
     Active Substance: VALSARTAN
     Indication: HYPERTENSION
     Dosage: ?          QUANTITY:1 TABLET(S);?
     Route: 048
     Dates: start: 20170831, end: 20180725
  6. VITAMIN D3 1,300MG [Concomitant]
  7. DILTIAZEM. [Concomitant]
     Active Substance: DILTIAZEM
  8. LETROZOLE 2.5MG [Concomitant]
     Active Substance: LETROZOLE
  9. VITAMIN E 400IU [Concomitant]
  10. CO?ENZYME Q?10 [Concomitant]
  11. SINGULAIR [Concomitant]
     Active Substance: MONTELUKAST SODIUM

REACTIONS (1)
  - Muscle spasms [None]

NARRATIVE: CASE EVENT DATE: 20180722
